FAERS Safety Report 17495871 (Version 1)
Quarter: 2020Q1

REPORT INFORMATION
  Report Type: Spontaneous
  Country: DE (occurrence: DE)
  Receive Date: 20200304
  Receipt Date: 20200304
  Transmission Date: 20200409
  Serious: Yes (Hospitalization)
  Sender: FDA-Public Use
  Company Number: DE-PFIZER INC-2020092898

PATIENT
  Age: 70 Year
  Sex: Male
  Weight: 72 kg

DRUGS (8)
  1. METOPROLOL. [Interacting]
     Active Substance: METOPROLOL
     Dosage: 23.75 MG, 1X/DAY (1-0-0-0)
     Route: 048
  2. ENTRESTO [Interacting]
     Active Substance: SACUBITRIL\VALSARTAN
     Dosage: UNK (1-0-0-0)
     Route: 048
  3. EPLERENONE. [Suspect]
     Active Substance: EPLERENONE
     Dosage: 25 MG, 1X/DAY (1-0-0-0)
     Route: 048
  4. ACETYLSALICYLSAEURE [Concomitant]
     Active Substance: ASPIRIN
     Dosage: 100 MG, 1X/DAY (0-1-0-0)
     Route: 048
  5. ATORVASTATIN [Concomitant]
     Active Substance: ATORVASTATIN
     Dosage: 40 MG, UNK (0-0-0-0.5)
     Route: 048
  6. NEBIVOLOL. [Interacting]
     Active Substance: NEBIVOLOL
     Dosage: 5 MG, UNK (0.5-0-0-0)
     Route: 048
  7. TORASEMID [Interacting]
     Active Substance: TORSEMIDE
     Dosage: 20 MG, UNK (0.5-0-0-0)
     Route: 048
  8. MAGNESIUM [Concomitant]
     Active Substance: MAGNESIUM
     Dosage: 400 MG, 1X/DAY (0-0-1-0)
     Route: 048

REACTIONS (7)
  - Blood potassium increased [Unknown]
  - Haemoglobin decreased [Unknown]
  - Fracture [Unknown]
  - Fall [Unknown]
  - Labelled drug-drug interaction medication error [Unknown]
  - Pain [Unknown]
  - Haematocrit decreased [Unknown]

NARRATIVE: CASE EVENT DATE: 20190727
